FAERS Safety Report 6706617-3 (Version None)
Quarter: 2010Q2

REPORT INFORMATION
  Report Type: 
  Country: None (occurrence: None)
  Receive Date: 20100503
  Receipt Date: 20100423
  Transmission Date: 20101027
  Serious: Yes (Hospitalization)
  Sender: FDA-Public Use
  Company Number: PL-ROCHE-696224

PATIENT
  Sex: Female
  Weight: 63 kg

DRUGS (9)
  1. BONIVA [Suspect]
     Dosage: DOSE: 3 MG/ 3 ML.
     Route: 042
     Dates: start: 20100326
  2. PRAZOL [Concomitant]
     Indication: PROPHYLAXIS
     Dosage: FREQUENCY: 1X1
     Route: 048
  3. ACARD [Concomitant]
     Indication: PROPHYLAXIS
     Dosage: FREQUENCY: 1X1
     Route: 048
  4. SEREVENT [Concomitant]
     Indication: CHRONIC OBSTRUCTIVE PULMONARY DISEASE
     Dosage: DOSE: 1. FREQUENCY: 2X1. DRUG REPORTED: SEREVENT DYSK.
     Route: 055
  5. SPIRIVA [Concomitant]
     Indication: CHRONIC OBSTRUCTIVE PULMONARY DISEASE
     Dosage: DOSE: 1. FREQUENCY: 1X1
     Route: 055
  6. THEOVENT [Concomitant]
     Indication: CHRONIC OBSTRUCTIVE PULMONARY DISEASE
     Dosage: FREQUENCY: 1X1 REDDENING.
     Route: 054
  7. MAGNESIUM [Concomitant]
     Dosage: DOSE: 2X1 TABLET
     Route: 048
  8. KALDYUM [Concomitant]
     Dosage: DOSE: 1X1 CAPSULE.
     Route: 048
  9. VITRUM-OSTEOMAG [Concomitant]
     Dosage: DRUG REPORTED: VITRUM CALCIUM 600 + D400. DOSE: 1 X 1 TABL

REACTIONS (5)
  - ERYTHEMA [None]
  - HYPOAESTHESIA [None]
  - PALPITATIONS [None]
  - SUPRAVENTRICULAR TACHYCARDIA [None]
  - SYNCOPE [None]
